FAERS Safety Report 17491467 (Version 1)
Quarter: 2020Q1

REPORT INFORMATION
  Report Type: Spontaneous
  Country: US (occurrence: US)
  Receive Date: 20200303
  Receipt Date: 20200303
  Transmission Date: 20200409
  Serious: No
  Sender: FDA-Public Use
  Company Number: US-JNJFOC-20200229729

PATIENT
  Age: 50 Year
  Sex: Male
  Weight: 68.1 kg

DRUGS (1)
  1. SYMTUZA [Suspect]
     Active Substance: COBICISTAT\DARUNAVIR\EMTRICITABINE\TENOFOVIR ALAFENAMIDE
     Indication: HIV TEST POSITIVE
     Route: 048

REACTIONS (2)
  - Medication error [Unknown]
  - Feeling abnormal [Unknown]
